FAERS Safety Report 8990417 (Version 4)
Quarter: 2013Q1

REPORT INFORMATION
  Report Type: Report from Study
  Country: US (occurrence: US)
  Receive Date: 20121228
  Receipt Date: 20130123
  Transmission Date: 20140127
  Serious: Yes (Hospitalization)
  Sender: FDA-Public Use
  Company Number: US-JNJFOC-20121210445

PATIENT
  Age: 45 Year
  Sex: Female
  Weight: 58.1 kg

DRUGS (13)
  1. USTEKINUMAB [Suspect]
     Indication: CROHN^S DISEASE
     Route: 058
     Dates: start: 20120604
  2. USTEKINUMAB [Suspect]
     Indication: CROHN^S DISEASE
     Route: 058
     Dates: start: 20121031
  3. ASACOL HD [Concomitant]
     Indication: CROHN^S DISEASE
     Route: 048
  4. LEXAPRO [Concomitant]
     Indication: DEPRESSION
     Route: 048
     Dates: start: 201112
  5. OSCAL + D CALCIUM [Concomitant]
     Route: 048
     Dates: start: 201012
  6. MIRALAX [Concomitant]
     Indication: CONSTIPATION
     Route: 048
     Dates: start: 20120905
  7. SULFASALAZINE [Concomitant]
     Route: 048
  8. CLOBETASOL [Concomitant]
     Route: 061
  9. TRIAMCINOLONE [Concomitant]
     Route: 061
  10. COLACE [Concomitant]
     Indication: CONSTIPATION
     Route: 048
     Dates: start: 20120505
  11. BENADRYL [Concomitant]
     Indication: HYPERSENSITIVITY
     Route: 048
     Dates: start: 2011
  12. MULTIVITAMINS [Concomitant]
  13. SYMAX [Concomitant]

REACTIONS (1)
  - Viral infection [Recovered/Resolved]
